FAERS Safety Report 18369100 (Version 4)
Quarter: 2022Q4

REPORT INFORMATION
  Report Type: Spontaneous
  Country: US (occurrence: US)
  Receive Date: 20201011
  Receipt Date: 20221013
  Transmission Date: 20230112
  Serious: No
  Sender: FDA-Public Use
  Company Number: US-CELLTRION INC.-2018US017228

PATIENT

DRUGS (19)
  1. INFLECTRA [Suspect]
     Active Substance: INFLIXIMAB-DYYB
     Indication: Crohn^s disease
     Dosage: UNK
     Dates: start: 201712
  2. INFLECTRA [Suspect]
     Active Substance: INFLIXIMAB-DYYB
     Dosage: UNK
     Route: 065
     Dates: start: 20180215
  3. INFLECTRA [Suspect]
     Active Substance: INFLIXIMAB-DYYB
     Dosage: 10 MG/KG EVERY 6 WEEKS
     Route: 042
  4. PROBIOTICS NOS [Concomitant]
     Active Substance: PROBIOTICS NOS
  5. HYALURONIC ACID [Concomitant]
     Active Substance: HYALURONIC ACID
  6. CLINDAMYCIN PHOSPHATE [Concomitant]
     Active Substance: CLINDAMYCIN PHOSPHATE
  7. TRIAMCINOLONE ACETONIDE [Concomitant]
     Active Substance: TRIAMCINOLONE ACETONIDE
  8. CANNABIS SATIVA SUBSP. INDICA TOP [Concomitant]
     Active Substance: CANNABIS SATIVA SUBSP. INDICA TOP
  9. .ALPHA.-TOCOPHEROL [Concomitant]
     Active Substance: .ALPHA.-TOCOPHEROL
  10. VITAMIN D NOS [Concomitant]
     Active Substance: VITAMIN D NOS
     Dosage: AS DIRECTED (125 MICROGRAM (5000 UT))
     Route: 048
  11. EXCEDRIN MIGRAINE [Concomitant]
     Active Substance: ACETAMINOPHEN\ASPIRIN\CAFFEINE
  12. FIBER [Concomitant]
     Active Substance: PSYLLIUM HUSK
  13. VITAMINS [Concomitant]
     Active Substance: VITAMINS
  14. CALCIUM\CHOLECALCIFEROL [Concomitant]
     Active Substance: CALCIUM\CHOLECALCIFEROL
  15. LEVOTHYROXINE SODIUM [Concomitant]
     Active Substance: LEVOTHYROXINE SODIUM
     Dosage: (88 MCG TABLET), 1 TABLET IN THE MORNING ON AN EMPTY STOMACH, ONCE A DAY
     Route: 048
  16. OMEPRAZOLE [Concomitant]
     Active Substance: OMEPRAZOLE
     Dosage: 1 CAPSULE 30 MINUTES BEFORE MORNING MEAL, ONCE A DAY
     Route: 048
  17. ONDANSETRON [Concomitant]
     Active Substance: ONDANSETRON
     Indication: Nausea
     Dosage: 1 TABLET ON THE TONGUE AND ALLOW TO DISSOLVE ORALLY EVERY 4 HOURS
     Route: 048
     Dates: start: 20210831
  18. WAL ZYR NOS [Concomitant]
     Active Substance: CETIRIZINE HYDROCHLORIDE OR KETOTIFEN FUMARATE
     Dosage: 1 TABLET ORALLY ONCE A DAY
     Route: 048
  19. PROAIR HFA [Concomitant]
     Active Substance: ALBUTEROL SULFATE
     Dosage: 1 PUFF

REACTIONS (4)
  - Intentional dose omission [Unknown]
  - Product temperature excursion issue [Unknown]
  - Off label use [Unknown]
  - Overdose [Unknown]
